FAERS Safety Report 8978984 (Version 1)
Quarter: 2012Q4

REPORT INFORMATION
  Report Type: Spontaneous
  Country: US (occurrence: None)
  Receive Date: 20121218
  Receipt Date: 20121218
  Transmission Date: 20130627
  Serious: No
  Sender: FDA-Public Use
  Company Number: None

PATIENT
  Sex: Female
  Weight: 54 kg

DRUGS (1)
  1. INTRON A [Suspect]
     Dates: start: 20120714

REACTIONS (2)
  - Myalgia [None]
  - Blood creatine phosphokinase increased [None]
